FAERS Safety Report 16720969 (Version 1)
Quarter: 2019Q3

REPORT INFORMATION
  Report Type: Spontaneous
  Country: IT (occurrence: IT)
  Receive Date: 20190820
  Receipt Date: 20190820
  Transmission Date: 20191005
  Serious: Yes (Other)
  Sender: FDA-Public Use
  Company Number: IT-AMGEN-ITASP2019095595

PATIENT
  Age: 47 Year
  Sex: Female

DRUGS (5)
  1. FASLODEX [Concomitant]
     Active Substance: FULVESTRANT
     Indication: BREAST CANCER METASTATIC
     Dosage: 250 MILLIGRAM
     Route: 030
     Dates: start: 20181113, end: 20190513
  2. DECAPEPTYL [GONADORELIN] [Concomitant]
     Active Substance: GONADORELIN
     Indication: BREAST CANCER
     Dosage: 3.75 MILLIGRAM 2ML POWDER AND SOLVENT FOR INJECTION SUSPENSION
     Route: 058
     Dates: start: 20170101, end: 20190510
  3. DEPALGOS [Concomitant]
     Active Substance: ACETAMINOPHEN\OXYCODONE HYDROCHLORIDE
     Indication: PAIN
     Dosage: 10 MG + 325 MG FILM-COATED TABLETS
     Route: 048
     Dates: start: 20181001, end: 20190605
  4. XGEVA [Suspect]
     Active Substance: DENOSUMAB
     Indication: BREAST CANCER
     Dosage: 120 MILLIGRAM
     Route: 058
     Dates: start: 20181127, end: 20190524
  5. IBRANCE [Concomitant]
     Active Substance: PALBOCICLIB
     Indication: BREAST CANCER METASTATIC
     Route: 048
     Dates: start: 20181113, end: 20190606

REACTIONS (2)
  - Gingivitis [Not Recovered/Not Resolved]
  - Osteonecrosis of jaw [Not Recovered/Not Resolved]

NARRATIVE: CASE EVENT DATE: 20190402
